FAERS Safety Report 18595915 (Version 1)
Quarter: 2020Q4

REPORT INFORMATION
  Report Type: Spontaneous
  Country: US (occurrence: US)
  Receive Date: 20201209
  Receipt Date: 20201209
  Transmission Date: 20210114
  Serious: No
  Sender: FDA-Public Use
  Company Number: US-SUPERNUS PHARMACEUTICALS, INC.-2020SUP00123

PATIENT
  Sex: Male
  Weight: 83.9 kg

DRUGS (9)
  1. TROKENDI XR [Suspect]
     Active Substance: TOPIRAMATE
     Indication: CLUSTER HEADACHE
     Dosage: UNK
  2. TROKENDI XR [Suspect]
     Active Substance: TOPIRAMATE
     Dosage: 50 MG, 1X/DAY ( WITH 100 CAPSULE TO EQUAL 150 MG TOTAL DOSE)
     Route: 048
     Dates: start: 2019, end: 201910
  3. TROKENDI XR [Suspect]
     Active Substance: TOPIRAMATE
     Dosage: 100 MG, 1X/DAY
     Route: 048
     Dates: start: 202005
  4. ONE-A-DAY NOS [Concomitant]
     Active Substance: MINERALS\VITAMINS
     Dosage: UNK, 1X/DAY
  5. TROKENDI XR [Suspect]
     Active Substance: TOPIRAMATE
     Indication: CLUSTER HEADACHE
     Dosage: 50 MG, 1X/DAY
     Route: 048
     Dates: start: 201811, end: 2019
  6. SUMATRIPTAN. [Concomitant]
     Active Substance: SUMATRIPTAN
     Dosage: UNK, AS NEEDED
  7. TROKENDI XR [Suspect]
     Active Substance: TOPIRAMATE
     Indication: CLUSTER HEADACHE
     Dosage: 100 MG, 1X/DAY
     Route: 048
     Dates: start: 2019, end: 2019
  8. TROKENDI XR [Suspect]
     Active Substance: TOPIRAMATE
     Dosage: 100 MG, 1X/DAY (WITH 50 MG CAPSULE TO EQUAL 150 MG TOTAL DOSE)
     Route: 048
     Dates: start: 2019, end: 201910
  9. OMEPRAZOLE. [Suspect]
     Active Substance: OMEPRAZOLE

REACTIONS (9)
  - Weight decreased [Recovered/Resolved]
  - Abdominal distension [Recovered/Resolved]
  - Gastric disorder [Recovered/Resolved]
  - Diarrhoea [Recovered/Resolved]
  - Faeces discoloured [Recovered/Resolved]
  - Drug ineffective for unapproved indication [Not Recovered/Not Resolved]
  - Abdominal pain upper [Recovered/Resolved]
  - Vomiting [Recovered/Resolved]
  - Gastrooesophageal reflux disease [Unknown]

NARRATIVE: CASE EVENT DATE: 2019
